FAERS Safety Report 14120645 (Version 1)
Quarter: 2017Q4

REPORT INFORMATION
  Report Type: Spontaneous
  Country: JP (occurrence: JP)
  Receive Date: 20171024
  Receipt Date: 20171024
  Transmission Date: 20180321
  Serious: Yes (Other)
  Sender: FDA-Public Use
  Company Number: JP-CMP PHARMA-2017CMP00033

PATIENT
  Age: 61 Year
  Sex: Female

DRUGS (1)
  1. TRIAMCINOLONE [Suspect]
     Active Substance: TRIAMCINOLONE
     Indication: MALIGNANT ASCITES
     Dosage: 400 MG; BOLUS INJECTION
     Route: 065

REACTIONS (1)
  - Intestinal perforation [Not Recovered/Not Resolved]
